FAERS Safety Report 5413254-X (Version None)
Quarter: 2007Q3

REPORT INFORMATION
  Report Type: 
  Country: None (occurrence: None)
  Receive Date: 20070814
  Receipt Date: 20061107
  Transmission Date: 20080115
  Serious: No
  Sender: FDA-Public Use
  Company Number: US-KINGPHARMUSA00001-K200601412

PATIENT

DRUGS (5)
  1. DELESTROGEN [Suspect]
     Indication: MENOPAUSE
     Dosage: UNK, QMON
     Route: 030
     Dates: start: 19960101, end: 20061001
  2. VYTORIN [Concomitant]
     Indication: BLOOD CHOLESTEROL
     Dosage: 1 TAB, QD
     Route: 048
  3. HYDROCODONE BITARTRATE [Concomitant]
     Indication: BONE PAIN
     Dosage: UNK, PRN
     Route: 048
  4. XANAX [Concomitant]
     Indication: ANXIETY
     Dosage: 2 MG, BID
     Route: 048
  5. VISTARIL                           /00058402/ [Concomitant]
     Indication: INSOMNIA
     Dosage: 30 MG, BID HS
     Route: 054

REACTIONS (1)
  - BLOOD CHOLESTEROL INCREASED [None]
